FAERS Safety Report 20875665 (Version 1)
Quarter: 2022Q2

REPORT INFORMATION
  Report Type: Spontaneous
  Country: BE (occurrence: BE)
  Receive Date: 20220526
  Receipt Date: 20220526
  Transmission Date: 20220720
  Serious: Yes (Disabling)
  Sender: FDA-Public Use
  Company Number: None

PATIENT
  Age: 35 Year
  Sex: Female
  Weight: 81 kg

DRUGS (6)
  1. RIFAMPIN [Suspect]
     Active Substance: RIFAMPIN
     Indication: Latent tuberculosis
     Dosage: 2 DF, QD
     Dates: start: 20211210, end: 20220210
  2. TRADONAL ODIS [Concomitant]
  3. BILASTINE [Concomitant]
     Active Substance: BILASTINE
  4. DEPO-PROVERA [Concomitant]
     Active Substance: MEDROXYPROGESTERONE ACETATE
  5. ACETAMINOPHEN\TRAMADOL [Concomitant]
     Active Substance: ACETAMINOPHEN\TRAMADOL
  6. COVERAM [Concomitant]
     Active Substance: AMLODIPINE\PERINDOPRIL

REACTIONS (3)
  - Hypertension [Recovering/Resolving]
  - Malaise [Recovering/Resolving]
  - Headache [Recovering/Resolving]
